FAERS Safety Report 5093402-4 (Version None)
Quarter: 2006Q3

REPORT INFORMATION
  Report Type: 
  Country: None (occurrence: None)
  Receive Date: 20060828
  Receipt Date: 20050104
  Transmission Date: 20061208
  Serious: Yes (Hospitalization, Disabling)
  Sender: FDA-Public Use
  Company Number: 9606

PATIENT
  Age: 56 Year
  Sex: Male
  Weight: 78 kg

DRUGS (12)
  1. AMIODARONE HCL [Suspect]
     Indication: SUPRAVENTRICULAR TACHYCARDIA
     Dosage: 1.2 G DAILY IV
     Route: 042
     Dates: start: 20040622, end: 20040709
  2. AMIODARONE HCL [Suspect]
     Indication: SUPRAVENTRICULAR TACHYCARDIA
     Dosage: 600 MG DAILY PO
     Route: 048
  3. AMIODARONE HCL [Suspect]
     Indication: SUPRAVENTRICULAR TACHYCARDIA
     Dosage: 400 MG WEEKLY PO
     Route: 048
  4. AMIODARONE HCL [Suspect]
     Indication: SUPRAVENTRICULAR TACHYCARDIA
     Dosage: 200 MG DAILY PO
     Route: 048
  5. SIMVASTATIN [Suspect]
     Indication: BLOOD CHOLESTEROL INCREASED
     Dosage: 40 MG NOCTE PO
     Route: 048
     Dates: start: 20040418, end: 20040706
  6. CLARITHROMYCIN [Suspect]
     Indication: LOWER RESPIRATORY TRACT INFECTION
     Dosage: 1 G FREQ UNK PO
     Route: 048
  7. AMLODIPINE [Concomitant]
  8. LANSOPRAZOLE [Concomitant]
  9. FERROUS SULPHATE ANHYDROUS [Concomitant]
  10. ASPIRIN [Concomitant]
  11. CEFTRIAXONE [Concomitant]
  12. ADENOSINE [Concomitant]

REACTIONS (14)
  - ALANINE AMINOTRANSFERASE INCREASED [None]
  - ASPARTATE AMINOTRANSFERASE INCREASED [None]
  - DRUG INTERACTION [None]
  - HYPOKALAEMIA [None]
  - HYPOKINESIA [None]
  - INFECTION [None]
  - LIVER FUNCTION TEST ABNORMAL [None]
  - MOBILITY DECREASED [None]
  - MUSCULAR WEAKNESS [None]
  - PLEURAL EFFUSION [None]
  - PNEUMONIA [None]
  - PULMONARY EMBOLISM [None]
  - RHABDOMYOLYSIS [None]
  - SUPRAVENTRICULAR TACHYCARDIA [None]
